FAERS Safety Report 4451897-0 (Version None)
Quarter: 2004Q3

REPORT INFORMATION
  Report Type: 
  Country: None (occurrence: None)
  Receive Date: 20040917
  Receipt Date: 20040907
  Transmission Date: 20050211
  Serious: Yes (Death, Life-Threatening, Hospitalization)
  Sender: FDA-Public Use
  Company Number: GB-JNJFOC-20040901657

PATIENT
  Sex: Female

DRUGS (12)
  1. REMICADE [Suspect]
     Indication: RHEUMATOID ARTHRITIS
     Route: 042
  2. CO-DYDRAMOL [Concomitant]
  3. CO-DYDRAMOL [Concomitant]
  4. PREDNISOLONE [Concomitant]
  5. METHOTREXATE [Concomitant]
  6. MESALAMINE [Concomitant]
  7. CALCICHEW [Concomitant]
  8. BECLOMETHASONE DIPROPIONATE [Concomitant]
  9. ALBUTEROL [Concomitant]
  10. ATROVENT [Concomitant]
  11. WARFARIN SODIUM [Concomitant]
  12. METFORMIN HCL [Concomitant]

REACTIONS (1)
  - NEOPLASM MALIGNANT [None]
